FAERS Safety Report 18589928 (Version 1)
Quarter: 2020Q4

REPORT INFORMATION
  Report Type: Spontaneous
  Country: US (occurrence: US)
  Receive Date: 20201207
  Receipt Date: 20201207
  Transmission Date: 20210114
  Serious: Yes (Other)
  Sender: FDA-Public Use
  Company Number: None

PATIENT
  Age: 53 Year
  Sex: Female
  Weight: 71.67 kg

DRUGS (1)
  1. GLATIRAMER ACETATE 40MG [Suspect]
     Active Substance: GLATIRAMER ACETATE
     Indication: MULTIPLE SCLEROSIS
     Route: 042
     Dates: start: 20200930

REACTIONS (2)
  - Injection site mass [None]
  - Product substitution issue [None]

NARRATIVE: CASE EVENT DATE: 20201120
